APPROVED DRUG PRODUCT: EZETIMIBE AND SIMVASTATIN
Active Ingredient: EZETIMIBE; SIMVASTATIN
Strength: 10MG;10MG
Dosage Form/Route: TABLET;ORAL
Application: A209461 | Product #001
Applicant: TORRENT PHARMACEUTICALS LTD
Approved: Jan 27, 2025 | RLD: No | RS: No | Type: DISCN